FAERS Safety Report 7315509-0 (Version None)
Quarter: 2011Q1

REPORT INFORMATION
  Report Type: 
  Country: None (occurrence: None)
  Receive Date: 20110218
  Receipt Date: 20110218
  Transmission Date: 20110831
  Serious: Yes (Hospitalization)
  Sender: FDA-Public Use
  Company Number: None

PATIENT
  Age: 79 Year
  Sex: Female
  Weight: 66.4 kg

DRUGS (5)
  1. COUMADIN [Suspect]
     Indication: CEREBROVASCULAR ACCIDENT
     Dosage: 3MG MTWTHFS PO
     Route: 048
  2. PROCARDIA XL [Concomitant]
  3. TYLENOL [Concomitant]
  4. PREDNISONE [Concomitant]
  5. COUMADIN [Suspect]
     Indication: CEREBROVASCULAR ACCIDENT
     Dosage: 5MG SUN PO
     Route: 048

REACTIONS (3)
  - UPPER GASTROINTESTINAL HAEMORRHAGE [None]
  - ANAPHYLACTIC REACTION [None]
  - HYPOXIA [None]
